FAERS Safety Report 10025196 (Version 2)
Quarter: 2014Q1

REPORT INFORMATION
  Report Type: Spontaneous
  Country: US (occurrence: None)
  Receive Date: 20140214
  Receipt Date: 20140306
  Transmission Date: 20141002
  Serious: Yes (Other)
  Sender: FDA-Public Use
  Company Number: ADR-2013-01705

PATIENT
  Sex: Female

DRUGS (3)
  1. BACLOFEN [Suspect]
     Indication: PAIN
  2. FENTANYL [Suspect]
  3. BUPIVACAINE [Suspect]
     Dosage: 1.553 MG; 4.552 MG/DAY

REACTIONS (4)
  - Pain [None]
  - Electric shock [None]
  - Feeling hot [None]
  - Medical device site reaction [None]
